FAERS Safety Report 12998282 (Version 1)
Quarter: 2016Q4

REPORT INFORMATION
  Report Type: Spontaneous
  Country: US (occurrence: US)
  Receive Date: 20161202
  Receipt Date: 20161202
  Transmission Date: 20170207
  Serious: No
  Sender: FDA-Public Use
  Company Number: None

PATIENT
  Age: 58 Year
  Sex: Male

DRUGS (6)
  1. HARVONI [Suspect]
     Active Substance: LEDIPASVIR\SOFOSBUVIR
     Indication: TYPE 1 DIABETES MELLITUS
     Dosage: 1 TAB QD ORAL
     Route: 048
  2. HARVONI [Suspect]
     Active Substance: LEDIPASVIR\SOFOSBUVIR
     Indication: CARDIAC FAILURE
     Dosage: 1 TAB QD ORAL
     Route: 048
  3. NEXAVAR [Concomitant]
     Active Substance: SORAFENIB
  4. HARVONI [Suspect]
     Active Substance: LEDIPASVIR\SOFOSBUVIR
     Indication: CHRONIC HEPATITIS C
     Dosage: 1 TAB QD ORAL
     Route: 048
  5. HARVONI [Suspect]
     Active Substance: LEDIPASVIR\SOFOSBUVIR
     Indication: CROHN^S DISEASE
     Dosage: 1 TAB QD ORAL
     Route: 048
  6. HARVONI [Suspect]
     Active Substance: LEDIPASVIR\SOFOSBUVIR
     Indication: ESSENTIAL HYPERTENSION
     Dosage: 1 TAB QD ORAL
     Route: 048

REACTIONS (3)
  - Malaise [None]
  - Weight decreased [None]
  - Intentional product use issue [None]

NARRATIVE: CASE EVENT DATE: 20161202
